FAERS Safety Report 24806333 (Version 4)
Quarter: 2025Q2

REPORT INFORMATION
  Report Type: Report from Study
  Country: GB (occurrence: GB)
  Receive Date: 20250103
  Receipt Date: 20250506
  Transmission Date: 20250717
  Serious: Yes (Other)
  Sender: ALEXION PHARMACEUTICALS
  Company Number: GB-AstraZeneca-2024A032012

PATIENT
  Age: 14 Year

DRUGS (29)
  1. SELUMETINIB [Suspect]
     Active Substance: SELUMETINIB
     Indication: Neurofibromatosis
     Dosage: 45 MILLIGRAM, BID
  2. SELUMETINIB [Suspect]
     Active Substance: SELUMETINIB
     Dosage: 45 MILLIGRAM, BID
  3. SELUMETINIB [Suspect]
     Active Substance: SELUMETINIB
     Dosage: 45 MILLIGRAM, BID
  4. SELUMETINIB [Suspect]
     Active Substance: SELUMETINIB
     Dosage: 20 MILLIGRAM, BID (45 MG TOTAL DAILY DOSE)
  5. SELUMETINIB [Suspect]
     Active Substance: SELUMETINIB
  6. SELUMETINIB [Suspect]
     Active Substance: SELUMETINIB
  7. SELUMETINIB [Suspect]
     Active Substance: SELUMETINIB
  8. SELUMETINIB [Suspect]
     Active Substance: SELUMETINIB
  9. SELUMETINIB [Suspect]
     Active Substance: SELUMETINIB
  10. SELUMETINIB [Suspect]
     Active Substance: SELUMETINIB
  11. SELUMETINIB [Suspect]
     Active Substance: SELUMETINIB
  12. SELUMETINIB [Suspect]
     Active Substance: SELUMETINIB
     Dosage: 25 MILLIGRAM, BID
  13. SELUMETINIB [Suspect]
     Active Substance: SELUMETINIB
  14. SELUMETINIB [Suspect]
     Active Substance: SELUMETINIB
     Dosage: 30 MILLIGRAM, BID
  15. SELUMETINIB [Suspect]
     Active Substance: SELUMETINIB
  16. SELUMETINIB [Suspect]
     Active Substance: SELUMETINIB
     Dosage: 25 MILLIGRAM, BID
  17. LIDOCAINE [Concomitant]
     Active Substance: LIDOCAINE
     Indication: Pain management
     Dosage: 5 PERCENT, BID
  18. ACETAMINOPHEN [Concomitant]
     Active Substance: ACETAMINOPHEN
     Indication: Pain management
  19. GABAPENTIN [Concomitant]
     Active Substance: GABAPENTIN
     Indication: Pain management
     Dosage: 400 MILLIGRAM, TID
  20. DERMOL [Concomitant]
     Active Substance: BENZALKONIUM CHLORIDE\CHLORHEXIDINE HYDROCHLORIDE\ISOPROPYL MYRISTATE\PARAFFIN
     Indication: Dermatitis acneiform
     Dosage: UNK, QD
  21. CLINDAMYCIN [Concomitant]
     Active Substance: CLINDAMYCIN
     Indication: Dermatitis acneiform
     Dosage: UNK, BID
  22. BENZYDAMINE [Concomitant]
     Active Substance: BENZYDAMINE
     Indication: Mouth ulceration
     Dosage: 15 MILLILITER, Q3H
  23. SODIUM HYALURONATE [Concomitant]
     Active Substance: HYALURONATE SODIUM
     Indication: Dry eye
     Dosage: 1 DROP, QID
  24. FLUCLOXACILLIN [Concomitant]
     Active Substance: FLUCLOXACILLIN
     Indication: Folliculitis
     Dosage: 500 MILLIGRAM, QID
  25. PREDNISOLONE [Concomitant]
     Active Substance: PREDNISOLONE
     Indication: Mouth ulceration
     Dosage: 5 MILLIGRAM, BID
  26. CARBOXYMETHYLCELLULOSE SODIUM [Concomitant]
     Active Substance: CARBOXYMETHYLCELLULOSE SODIUM
     Indication: Mouth ulceration
  27. Cetraben [Concomitant]
     Indication: Dry skin
     Dosage: UNK UNK, BID
  28. CHLOROCRESOL [Concomitant]
     Active Substance: CHLOROCRESOL
     Indication: Dry skin
     Dosage: UNK, BID
  29. FLUOXETINE [Concomitant]
     Active Substance: FLUOXETINE HYDROCHLORIDE
     Indication: Anxiety
     Dosage: 10 MILLIGRAM, QD

REACTIONS (6)
  - Lower respiratory tract infection [Recovered/Resolved]
  - Gastroenteritis [Recovered/Resolved]
  - Paronychia [Recovered/Resolved]
  - Viral infection [Recovered/Resolved]
  - Rash [Recovered/Resolved]
  - Fracture [Recovering/Resolving]
